FAERS Safety Report 17131096 (Version 1)
Quarter: 2019Q4

REPORT INFORMATION
  Report Type: Spontaneous
  Country: DE (occurrence: DE)
  Receive Date: 20191209
  Receipt Date: 20191209
  Transmission Date: 20200122
  Serious: Yes (Hospitalization, Other)
  Sender: FDA-Public Use
  Company Number: DE-NOVOPROD-699647

PATIENT
  Age: 39 Year
  Sex: Female

DRUGS (5)
  1. PERGOVERIS [Suspect]
     Active Substance: FOLLITROPIN\LUTROPIN ALFA
     Indication: ASSISTED REPRODUCTIVE TECHNOLOGY
     Dosage: UNK
     Route: 065
  2. CETROTIDE [Suspect]
     Active Substance: CETRORELIX ACETATE
     Indication: ASSISTED REPRODUCTIVE TECHNOLOGY
     Dosage: UNK
     Route: 065
  3. ESTRIFAM [Suspect]
     Active Substance: ESTRADIOL
     Indication: ASSISTED REPRODUCTIVE TECHNOLOGY
     Dosage: 2 MG
     Route: 065
  4. FOLSAEURE [Concomitant]
     Active Substance: FOLIC ACID
     Indication: ASSISTED REPRODUCTIVE TECHNOLOGY
     Dosage: 5 MG
     Route: 065
  5. PRIMOLUT-NOR [Suspect]
     Active Substance: NORETHINDRONE ACETATE
     Indication: ASSISTED REPRODUCTIVE TECHNOLOGY
     Dosage: 5 MG
     Route: 065

REACTIONS (4)
  - Off label use [Unknown]
  - Mucosal disorder [Recovered/Resolved]
  - Bladder discomfort [Recovered/Resolved]
  - Ureteric injury [Recovered/Resolved]

NARRATIVE: CASE EVENT DATE: 20190324
